FAERS Safety Report 6008752-4 (Version None)
Quarter: 2008Q4

REPORT INFORMATION
  Report Type: 
  Country: None (occurrence: None)
  Receive Date: 20081217
  Receipt Date: 20081212
  Transmission Date: 20090506
  Serious: Yes (Hospitalization)
  Sender: FDA-Public Use
  Company Number: JP-ABBOTT-08P-087-0487170-00

PATIENT
  Sex: Male
  Weight: 46 kg

DRUGS (6)
  1. HUMIRA [Suspect]
     Indication: RHEUMATOID ARTHRITIS
     Route: 058
     Dates: start: 20081014, end: 20081028
  2. HUMIRA [Suspect]
     Route: 058
     Dates: start: 20081118
  3. ISONIAZID [Suspect]
     Indication: ANTIBIOTIC PROPHYLAXIS
     Route: 048
     Dates: start: 20080922, end: 20081031
  4. ATORVASTATIN CALCIUM HYDRATE [Concomitant]
     Indication: HYPERLIPIDAEMIA
     Route: 048
     Dates: end: 20081031
  5. ATORVASTATIN CALCIUM HYDRATE [Concomitant]
     Route: 048
     Dates: start: 20081119
  6. METHOTREXATE [Concomitant]
     Indication: RHEUMATOID ARTHRITIS
     Route: 048
     Dates: start: 20080922, end: 20081031

REACTIONS (3)
  - GALLBLADDER POLYP [None]
  - HEPATIC FUNCTION ABNORMAL [None]
  - RENAL CYST [None]
